FAERS Safety Report 25758668 (Version 2)
Quarter: 2025Q4

REPORT INFORMATION
  Report Type: Spontaneous
  Country: US (occurrence: US)
  Receive Date: 20250904
  Receipt Date: 20251017
  Transmission Date: 20260117
  Serious: No
  Sender: LEO PHARM
  Company Number: US-LEO Pharma-382502

PATIENT
  Age: 24 Year
  Sex: Female

DRUGS (1)
  1. ADBRY [Suspect]
     Active Substance: TRALOKINUMAB-LDRM
     Indication: Dermatitis atopic
     Dosage: DOSE/FREQUENCY: INJECT 1 PEN UNDER THE SKIN EVERY 14 DAYS ROTATING INJECTION SITES; MAY SPACE OUT 4
     Dates: start: 202507

REACTIONS (2)
  - Drug ineffective [Unknown]
  - Dermatitis atopic [Unknown]
